FAERS Safety Report 13143536 (Version 1)
Quarter: 2017Q1

REPORT INFORMATION
  Report Type: Spontaneous
  Country: US (occurrence: US)
  Receive Date: 20170123
  Receipt Date: 20170123
  Transmission Date: 20170428
  Serious: No
  Sender: FDA-Public Use
  Company Number: US-BAUSCH-BL-2016-001647

PATIENT
  Age: 23 Year
  Sex: Female
  Weight: 59.02 kg

DRUGS (2)
  1. ALAWAY [Suspect]
     Active Substance: KETOTIFEN FUMARATE
     Indication: EYE ALLERGY
     Route: 047
     Dates: start: 201601, end: 20160115
  2. ALAWAY [Suspect]
     Active Substance: KETOTIFEN FUMARATE
     Route: 047
     Dates: end: 20160115

REACTIONS (3)
  - Eye irritation [Recovered/Resolved]
  - Ocular hyperaemia [Recovered/Resolved]
  - Drug ineffective [Unknown]

NARRATIVE: CASE EVENT DATE: 201601
